FAERS Safety Report 9595549 (Version 1)
Quarter: 2013Q4

REPORT INFORMATION
  Report Type: Spontaneous
  Country: US (occurrence: US)
  Receive Date: 20131004
  Receipt Date: 20131004
  Transmission Date: 20140711
  Serious: Yes (Other)
  Sender: FDA-Public Use
  Company Number: US-PFIZER INC-2013283527

PATIENT
  Age: 57 Year
  Sex: Female

DRUGS (4)
  1. PREMPRO [Suspect]
     Indication: VULVOVAGINAL PRURITUS
     Dosage: UNK
     Route: 048
  2. PREMPRO [Suspect]
     Indication: VULVOVAGINAL BURNING SENSATION
  3. PREMPRO [Suspect]
     Indication: VULVOVAGINAL DRYNESS
  4. PREMPRO [Suspect]
     Indication: DYSPAREUNIA

REACTIONS (2)
  - Vaginal haemorrhage [Unknown]
  - Drug ineffective [Unknown]
